FAERS Safety Report 21602958 (Version 2)
Quarter: 2023Q2

REPORT INFORMATION
  Report Type: Spontaneous
  Country: US (occurrence: US)
  Receive Date: 20221116
  Receipt Date: 20230515
  Transmission Date: 20230722
  Serious: No
  Sender: FDA-Public Use
  Company Number: US-UCBSA-2022064980

PATIENT
  Sex: Female

DRUGS (1)
  1. NEUPRO [Suspect]
     Active Substance: ROTIGOTINE
     Indication: Restless legs syndrome
     Dosage: 3 MILLIGRAM, UNK
     Route: 062
     Dates: start: 20151108

REACTIONS (5)
  - Product adhesion issue [Unknown]
  - Hyperhidrosis [Unknown]
  - Tremor [Unknown]
  - Product availability issue [Unknown]
  - Therapy interrupted [Unknown]
